FAERS Safety Report 5720298-7 (Version None)
Quarter: 2008Q2

REPORT INFORMATION
  Report Type: 
  Country: None (occurrence: None)
  Receive Date: 20080423
  Receipt Date: 20070627
  Transmission Date: 20081010
  Serious: Yes (Other)
  Sender: FDA-Public Use
  Company Number: 242829

PATIENT
  Age: 69 Year
  Sex: Male
  Weight: 76 kg

DRUGS (3)
  1. AVASTIN [Suspect]
     Indication: COLORECTAL CANCER
     Dosage: INTRAVENOUS
     Route: 042
     Dates: start: 20050628
  2. CETUXIMAB (CETUXIMAB) [Concomitant]
  3. CAPECITABINE (CAPECITABINE) [Concomitant]

REACTIONS (1)
  - PROTEINURIA [None]
